FAERS Safety Report 13963236 (Version 1)
Quarter: 2017Q3

REPORT INFORMATION
  Report Type: Spontaneous
  Country: US (occurrence: US)
  Receive Date: 20170912
  Receipt Date: 20170912
  Transmission Date: 20171128
  Serious: No
  Sender: FDA-Public Use
  Company Number: None

PATIENT
  Age: 29 Year
  Sex: Female
  Weight: 85.05 kg

DRUGS (1)
  1. MIBELAS 24 FE [Suspect]
     Active Substance: ETHINYL ESTRADIOL\NORETHINDRONE ACETATE
     Indication: CONTRACEPTION
     Dosage: ?          QUANTITY:28 TABLET(S);?
     Route: 048
     Dates: start: 20170110, end: 20170614

REACTIONS (3)
  - Product use issue [None]
  - Pregnancy on oral contraceptive [None]
  - Exposure during pregnancy [None]

NARRATIVE: CASE EVENT DATE: 20170524
